FAERS Safety Report 4416112-2 (Version None)
Quarter: 2004Q3

REPORT INFORMATION
  Report Type: 
  Country: None (occurrence: None)
  Receive Date: 20040802
  Receipt Date: 20040716
  Transmission Date: 20050211
  Serious: Yes (Hospitalization, Other)
  Sender: FDA-Public Use
  Company Number: 2004-07-1076

PATIENT
  Age: 53 Year
  Sex: Male

DRUGS (2)
  1. CLARITIN [Suspect]
     Dosage: ORAL
     Route: 048
     Dates: start: 20040522
  2. ARANESP (DARBEPOETIN ALFA) NO DOSE FORM [Suspect]
     Indication: RENAL FAILURE CHRONIC
     Dosage: 40 MCG SUBCUTANEOUS
     Route: 058
     Dates: start: 20040407

REACTIONS (2)
  - BLOOD PRESSURE INCREASED [None]
  - DRUG INTERACTION [None]
